FAERS Safety Report 9175341 (Version 2)
Quarter: 2013Q2

REPORT INFORMATION
  Report Type: Report from Study
  Country: US (occurrence: US)
  Receive Date: 20130320
  Receipt Date: 20130422
  Transmission Date: 20140414
  Serious: Yes (Other)
  Sender: FDA-Public Use
  Company Number: US-ABBOTT-13P-163-1063396-00

PATIENT
  Age: 30 Year
  Sex: Female

DRUGS (4)
  1. HUMIRA [Suspect]
     Indication: CROHN^S DISEASE
     Dates: start: 20111214
  2. APRISO [Concomitant]
     Indication: CROHN^S DISEASE
     Route: 048
     Dates: start: 20111003
  3. PRENATAL VITAMINS [Concomitant]
     Indication: VITAMIN SUPPLEMENTATION
  4. 6-MP [Concomitant]
     Indication: CROHN^S DISEASE
     Route: 048
     Dates: end: 2013

REACTIONS (6)
  - Gestational diabetes [Recovered/Resolved]
  - Pre-eclampsia [Recovered/Resolved]
  - Injection site haemorrhage [Unknown]
  - Injection site erythema [Unknown]
  - Injection site erythema [Unknown]
  - Injection site haemorrhage [Unknown]
